FAERS Safety Report 4719312-7 (Version None)
Quarter: 2005Q3

REPORT INFORMATION
  Report Type: 
  Country: None (occurrence: None)
  Receive Date: 20050721
  Receipt Date: 20050127
  Transmission Date: 20060218
  Serious: No
  Sender: FDA-Public Use
  Company Number: US-GLAXOSMITHKLINE-A0542677A

PATIENT
  Age: 60 Year
  Sex: Male
  Weight: 72.7 kg

DRUGS (1)
  1. MALARONE [Suspect]
     Indication: MALARIA
     Dosage: 1TAB PER DAY
     Route: 048
     Dates: start: 20050117, end: 20050127

REACTIONS (1)
  - MOUTH ULCERATION [None]
